FAERS Safety Report 7092642-2 (Version None)
Quarter: 2010Q4

REPORT INFORMATION
  Report Type: 
  Country: None (occurrence: None)
  Receive Date: 20101110
  Receipt Date: 20101027
  Transmission Date: 20110411
  Serious: Yes (Hospitalization, Other)
  Sender: FDA-Public Use
  Company Number: FR-JNJFOC-20101101862

PATIENT
  Sex: Male

DRUGS (8)
  1. IXPRIM [Suspect]
     Indication: PROCEDURAL PAIN
     Dosage: DOSE: 4 TABLETS PER DAY.
     Route: 048
  2. MORPHINE [Suspect]
     Indication: SURGERY
     Route: 048
  3. MORPHINE [Suspect]
     Route: 048
  4. MORPHINE [Suspect]
     Indication: PROCEDURAL PAIN
     Route: 048
  5. MORPHINE [Suspect]
     Route: 048
  6. LEXOMIL [Concomitant]
     Route: 065
  7. NAROPIN [Concomitant]
     Route: 065
  8. ACUPAN [Concomitant]
     Route: 065

REACTIONS (4)
  - AGGRESSION [None]
  - CONFUSIONAL STATE [None]
  - DELIRIUM [None]
  - DISORIENTATION [None]
